FAERS Safety Report 26196056 (Version 1)
Quarter: 2025Q4

REPORT INFORMATION
  Report Type: Report from Study
  Country: None (occurrence: EU)
  Receive Date: 20251224
  Receipt Date: 20251224
  Transmission Date: 20260118
  Serious: Yes (Other)
  Sender: SPRINGWORKS THERAPEUTIC
  Company Number: EU-SPRINGWORKS THERAPEUTICS-SW-003670

PATIENT
  Age: 26 Year
  Weight: 63 kg

DRUGS (2)
  1. MIRDAMETINIB [Suspect]
     Active Substance: MIRDAMETINIB
     Indication: Neurofibromatosis
     Dosage: 4 MILLIGRAM, BID EVERY 12 HOURS
     Route: 061
  2. MIRDAMETINIB [Suspect]
     Active Substance: MIRDAMETINIB
     Indication: Neurofibroma
     Dosage: 3 MILLIGRAM, BID EVERY 12 HOURS
     Route: 061

REACTIONS (4)
  - Dermatitis acneiform [Recovered/Resolved]
  - Dermatitis acneiform [Recovered/Resolved]
  - Dermatitis acneiform [Recovered/Resolved]
  - Dermatitis acneiform [Recovering/Resolving]
